FAERS Safety Report 18540266 (Version 5)
Quarter: 2021Q4

REPORT INFORMATION
  Report Type: Spontaneous
  Country: US (occurrence: US)
  Receive Date: 20201124
  Receipt Date: 20211110
  Transmission Date: 20220303
  Serious: Yes (Hospitalization)
  Sender: FDA-Public Use
  Company Number: US-PFIZER INC-2020460203

PATIENT
  Age: 86 Year
  Sex: Female
  Weight: 74.2 kg

DRUGS (4)
  1. IBRANCE [Suspect]
     Active Substance: PALBOCICLIB
     Indication: Breast cancer metastatic
     Dosage: 100 MG
     Route: 048
     Dates: start: 20200731
  2. IBRANCE [Suspect]
     Active Substance: PALBOCICLIB
     Dosage: 75 MG
     Dates: start: 20200925
  3. IBRANCE [Suspect]
     Active Substance: PALBOCICLIB
     Dosage: 75 MG, CYCLIC (DAILY FOR 21 DAY ON/7 DAY OFF)
     Route: 048
     Dates: start: 20210721
  4. ANASTROZOLE [Concomitant]
     Active Substance: ANASTROZOLE
     Indication: Breast cancer metastatic
     Dosage: UNK, DAILY
     Dates: start: 202007

REACTIONS (5)
  - Haemoglobin decreased [Unknown]
  - Ecchymosis [Unknown]
  - Contusion [Unknown]
  - Localised infection [Unknown]
  - Anaemia [Unknown]
